FAERS Safety Report 16805232 (Version 1)
Quarter: 2019Q3

REPORT INFORMATION
  Report Type: Spontaneous
  Country: US (occurrence: US)
  Receive Date: 20190913
  Receipt Date: 20190913
  Transmission Date: 20191005
  Serious: Yes (Other)
  Sender: FDA-Public Use
  Company Number: US-TEVA-2019-US-1107935

PATIENT
  Age: 56 Year
  Sex: Female
  Weight: 54 kg

DRUGS (5)
  1. ESTRADIOL. [Concomitant]
     Active Substance: ESTRADIOL
  2. DICLOFENAC [Concomitant]
     Active Substance: DICLOFENAC
  3. FIORICET [Concomitant]
     Active Substance: ACETAMINOPHEN\BUTALBITAL\CAFFEINE
     Indication: MIGRAINE
  4. AJOVY [Suspect]
     Active Substance: FREMANEZUMAB-VFRM
     Indication: MIGRAINE
     Dosage: ADMINISTERING MONTHLY AJOVY?LAST MONTHLY INJECTION ON 9/5/19
     Route: 065
     Dates: start: 201903
  5. ALBUTEROL. [Concomitant]
     Active Substance: ALBUTEROL

REACTIONS (9)
  - Injection site pruritus [Not Recovered/Not Resolved]
  - Injection site discomfort [Unknown]
  - Cellulitis [Unknown]
  - Injection site erythema [Unknown]
  - Umbilical hernia [Unknown]
  - Hypersensitivity [Unknown]
  - Injection site induration [Recovering/Resolving]
  - Injection site rash [Not Recovered/Not Resolved]
  - Inguinal hernia [Unknown]

NARRATIVE: CASE EVENT DATE: 201903
